FAERS Safety Report 9709026 (Version 1)
Quarter: 2013Q4

REPORT INFORMATION
  Report Type: Spontaneous
  Country: GB (occurrence: None)
  Receive Date: 20131122
  Receipt Date: 20131122
  Transmission Date: 20140711
  Serious: No
  Sender: FDA-Public Use
  Company Number: CL-535-2013

PATIENT
  Age: 66 Year
  Sex: Male
  Weight: 57 kg

DRUGS (3)
  1. ONDANSETRON [Suspect]
     Indication: ANTIEMETIC SUPPORTIVE CARE
     Dosage: 8MG UNK IV
  2. OXALIPLATIN [Suspect]
     Indication: OESOPHAGEAL CARCINOMA
     Dosage: 210MG UNK IV
  3. RALTITREXED [Suspect]
     Indication: OESOPHAGEAL CARCINOMA
     Dosage: 4.9MG UNK IV

REACTIONS (3)
  - Blister [None]
  - Discomfort [None]
  - Rash erythematous [None]
